FAERS Safety Report 23502577 (Version 1)
Quarter: 2024Q1

REPORT INFORMATION
  Report Type: Spontaneous
  Country: CZ (occurrence: CZ)
  Receive Date: 20240208
  Receipt Date: 20240208
  Transmission Date: 20240410
  Serious: Yes (Other)
  Sender: FDA-Public Use
  Company Number: CZ-GLENMARK PHARMACEUTICALS-2024GMK088298

PATIENT
  Age: 51 Year
  Sex: Male

DRUGS (3)
  1. IMATINIB [Suspect]
     Active Substance: IMATINIB
     Indication: Chronic myeloid leukaemia
     Dosage: 400 MG, QD
     Route: 065
  2. IMATINIB [Suspect]
     Active Substance: IMATINIB
     Dosage: 200 MG, QD
     Route: 065
  3. IMATINIB [Suspect]
     Active Substance: IMATINIB
     Dosage: 400 MG, QD
     Route: 065

REACTIONS (9)
  - Immobile [Unknown]
  - Disease progression [Unknown]
  - Adverse drug reaction [Unknown]
  - Diarrhoea [Unknown]
  - Pain in extremity [Unknown]
  - Fatigue [Unknown]
  - Treatment failure [Unknown]
  - Drug effect less than expected [Unknown]
  - Therapeutic product effect incomplete [Unknown]
